FAERS Safety Report 6763058-0 (Version None)
Quarter: 2010Q2

REPORT INFORMATION
  Report Type: 
  Country: None (occurrence: None)
  Receive Date: 20100609
  Receipt Date: 20100527
  Transmission Date: 20101027
  Serious: Yes (Other)
  Sender: FDA-Public Use
  Company Number: PHHY2010US35073

PATIENT
  Sex: Female
  Weight: 64.399 kg

DRUGS (1)
  1. RECLAST [Suspect]
     Indication: OSTEOPOROSIS
     Dosage: 5 MG ANNUAL INFUSION
     Route: 042
     Dates: start: 20100513

REACTIONS (3)
  - EYE SWELLING [None]
  - PYREXIA [None]
  - URTICARIA [None]
